FAERS Safety Report 20752980 (Version 1)
Quarter: 2022Q2

REPORT INFORMATION
  Report Type: Spontaneous
  Country: US (occurrence: None)
  Receive Date: 20220426
  Receipt Date: 20220426
  Transmission Date: 20220721
  Serious: No
  Sender: FDA-Public Use
  Company Number: US-ROCHE-2950802

PATIENT
  Sex: Male

DRUGS (1)
  1. ESBRIET [Suspect]
     Active Substance: PIRFENIDONE
     Indication: Idiopathic interstitial pneumonia
     Dosage: 3 TABLET 3 TIMES A DAY
     Route: 048
     Dates: start: 20210701

REACTIONS (2)
  - Memory impairment [Unknown]
  - Product dose omission issue [Unknown]
